FAERS Safety Report 15995192 (Version 1)
Quarter: 2019Q1

REPORT INFORMATION
  Report Type: Spontaneous
  Country: US (occurrence: US)
  Receive Date: 20190129
  Receipt Date: 20190129
  Transmission Date: 20190418
  Serious: No
  Sender: FDA-Public Use
  Company Number: None

PATIENT
  Age: 51 Year
  Sex: Female

DRUGS (4)
  1. PROGRAF [Suspect]
     Active Substance: TACROLIMUS\TACROLIMUS ANHYDROUS
  2. AZOTHIOPRINE [Suspect]
     Active Substance: AZATHIOPRINE
  3. LORAZEPAM. [Suspect]
     Active Substance: LORAZEPAM
  4. GABAPENTIN. [Suspect]
     Active Substance: GABAPENTIN

REACTIONS (5)
  - Influenza [None]
  - Condition aggravated [None]
  - Autonomic neuropathy [None]
  - Blood pressure decreased [None]
  - Headache [None]

NARRATIVE: CASE EVENT DATE: 20190129
